FAERS Safety Report 14289507 (Version 1)
Quarter: 2017Q4

REPORT INFORMATION
  Report Type: Spontaneous
  Country: US (occurrence: None)
  Receive Date: 20171214
  Receipt Date: 20171214
  Transmission Date: 20180321
  Serious: Yes (Hospitalization)
  Sender: FDA-Public Use
  Company Number: None

PATIENT
  Age: 59 Year

DRUGS (16)
  1. PROMACTA [Suspect]
     Active Substance: ELTROMBOPAG OLAMINE
     Indication: BLOOD DISORDER
     Route: 048
     Dates: start: 20171213
  2. HYDRROXYZ [Concomitant]
  3. PANTROPRAZOLE SODIUM CADISTA [Concomitant]
     Active Substance: PANTOPRAZOLE SODIUM
  4. PROPANOLOL [Concomitant]
     Active Substance: PROPRANOLOL HYDROCHLORIDE
  5. VASCEPA [Concomitant]
     Active Substance: ICOSAPENT ETHYL
  6. LISINOPRIL/HCTZ [Concomitant]
     Active Substance: HYDROCHLOROTHIAZIDE\LISINOPRIL
  7. METFORMIN [Concomitant]
     Active Substance: METFORMIN HYDROCHLORIDE
  8. AMLODIPINE [Concomitant]
     Active Substance: AMLODIPINE BESYLATE
  9. HUMULIN NOS [Concomitant]
     Active Substance: INSULIN HUMAN
  10. DULOXETINE. [Concomitant]
     Active Substance: DULOXETINE
  11. GABAPENTIN. [Concomitant]
     Active Substance: GABAPENTIN
  12. TEKTURNA [Concomitant]
     Active Substance: ALISKIREN HEMIFUMARATE
  13. RIZATRIPTAN. [Concomitant]
     Active Substance: RIZATRIPTAN
  14. TRAMADOL. [Concomitant]
     Active Substance: TRAMADOL
  15. TIROSINT [Concomitant]
     Active Substance: LEVOTHYROXINE SODIUM
  16. INVOKANA [Concomitant]
     Active Substance: CANAGLIFLOZIN

REACTIONS (1)
  - Drug dose omission [None]

NARRATIVE: CASE EVENT DATE: 201711
